FAERS Safety Report 9244211 (Version 1)
Quarter: 2013Q1

REPORT INFORMATION
  Report Type: Spontaneous
  Country: US (occurrence: None)
  Receive Date: 20121123
  Receipt Date: 20121123
  Transmission Date: 20140127
  Serious: Yes (Other)
  Sender: FDA-Public Use
  Company Number: 362063

PATIENT
  Age: 52 Year
  Sex: Female

DRUGS (4)
  1. VICTOZA (LIRAGLUTIDE) SOLUTION FOR INJECTION, 6MG/ML [Suspect]
     Indication: TYPE 2 DIABETES MELLITUS
     Route: 058
     Dates: start: 20120509, end: 20120920
  2. METFORMIN (METFORMIN) [Suspect]
  3. VITAMIN D / 00107901 (ERGOCALCIFEROL) [Concomitant]
  4. FISH OIL (FISH OIL) [Concomitant]

REACTIONS (1)
  - Pancreatitis acute [None]
